FAERS Safety Report 12427715 (Version 1)
Quarter: 2016Q2

REPORT INFORMATION
  Report Type: Spontaneous
  Country: US (occurrence: None)
  Receive Date: 20160601
  Receipt Date: 20160601
  Transmission Date: 20160815
  Serious: Yes (Other)
  Sender: FDA-Public Use
  Company Number: None

PATIENT
  Age: 33 Year
  Sex: Female
  Weight: 65.77 kg

DRUGS (4)
  1. ZYRTEC [Suspect]
     Active Substance: CETIRIZINE HYDROCHLORIDE
     Indication: ASTHMA
     Route: 048
  2. PROBIOTIC CAPSULES [Concomitant]
     Active Substance: PROBIOTICS NOS
  3. NASOCORT [Concomitant]
     Active Substance: BUDESONIDE
  4. KIRKLAND SIGNATURE ALLER TEC ALLERGY [Suspect]
     Active Substance: CETIRIZINE HYDROCHLORIDE

REACTIONS (3)
  - Micturition urgency [None]
  - Nocturia [None]
  - Urine output decreased [None]
